FAERS Safety Report 23346298 (Version 3)
Quarter: 2024Q1

REPORT INFORMATION
  Report Type: Report from Study
  Country: CO (occurrence: CO)
  Receive Date: 20231228
  Receipt Date: 20240209
  Transmission Date: 20240410
  Serious: Yes (Death, Hospitalization, Other)
  Sender: FDA-Public Use
  Company Number: CO-ABBVIE-5562013

PATIENT
  Age: 85 Year
  Sex: Male
  Weight: 57 kg

DRUGS (3)
  1. VENCLEXTA [Suspect]
     Active Substance: VENETOCLAX
     Indication: Acute myeloid leukaemia
     Dosage: FORM STRENGTH: 100 MILLIGRAMS
     Route: 048
     Dates: start: 20221214, end: 20240109
  2. VENCLEXTA [Suspect]
     Active Substance: VENETOCLAX
     Indication: Acute myeloid leukaemia
     Dosage: 400 MILLIGRAM?FORM STRENGTH: 100MG?STOP DATE TEXT: JAN 2024
     Route: 048
     Dates: start: 20240131
  3. AZACITIDINE [Concomitant]
     Active Substance: AZACITIDINE
     Indication: Acute myeloid leukaemia
     Route: 058
     Dates: start: 20231020, end: 20231027

REACTIONS (8)
  - General physical health deterioration [Fatal]
  - Haemoglobin decreased [Recovering/Resolving]
  - Platelet count decreased [Recovering/Resolving]
  - Limb injury [Recovering/Resolving]
  - Acute myeloid leukaemia [Recovering/Resolving]
  - Sepsis [Fatal]
  - Localised infection [Recovering/Resolving]
  - Pneumonia [Fatal]

NARRATIVE: CASE EVENT DATE: 20231201
